FAERS Safety Report 14161566 (Version 2)
Quarter: 2017Q4

REPORT INFORMATION
  Report Type: Spontaneous
  Country: JP (occurrence: JP)
  Receive Date: 20171106
  Receipt Date: 20171108
  Transmission Date: 20180321
  Serious: Yes (Hospitalization)
  Sender: FDA-Public Use
  Company Number: JP-JNJFOC-20171102816

PATIENT
  Age: 8 Decade
  Sex: Female

DRUGS (5)
  1. XEPLION [Suspect]
     Active Substance: PALIPERIDONE PALMITATE
     Indication: SCHIZOPHRENIA
     Dosage: GLUTEAL MUSCLE
     Route: 030
     Dates: start: 20170804, end: 20170804
  2. XEPLION [Suspect]
     Active Substance: PALIPERIDONE PALMITATE
     Indication: SCHIZOPHRENIA
     Dosage: GLUTEAL MUSCLE
     Route: 030
     Dates: start: 20170901, end: 20170901
  3. XEPLION [Suspect]
     Active Substance: PALIPERIDONE PALMITATE
     Indication: SCHIZOPHRENIA
     Dosage: GLUTEAL MUSCLE
     Route: 030
     Dates: start: 20170728, end: 20170728
  4. XEPLION [Suspect]
     Active Substance: PALIPERIDONE PALMITATE
     Indication: SCHIZOPHRENIA
     Dosage: GLUTEAL MUSCLE
     Route: 030
     Dates: start: 20170929, end: 20170929
  5. LIMAS [Concomitant]
     Active Substance: LITHIUM CARBONATE
     Indication: FEELING ABNORMAL
     Route: 048

REACTIONS (3)
  - Off label use [Unknown]
  - Drug administered at inappropriate site [Unknown]
  - Spinal compression fracture [Unknown]

NARRATIVE: CASE EVENT DATE: 2017
